FAERS Safety Report 10023846 (Version 1)
Quarter: 2014Q1

REPORT INFORMATION
  Report Type: Report from Study
  Country: US (occurrence: US)
  Receive Date: 20140320
  Receipt Date: 20140320
  Transmission Date: 20141002
  Serious: Yes (Other)
  Sender: FDA-Public Use
  Company Number: US-ASTRAZENECA-2014SE17881

PATIENT
  Age: 61 Year
  Sex: Female
  Weight: 74.8 kg

DRUGS (15)
  1. ENTOCORT EC [Suspect]
     Indication: CROHN^S DISEASE
     Route: 048
  2. ENTOCORT EC [Suspect]
     Indication: CROHN^S DISEASE
     Route: 048
     Dates: start: 20140218
  3. ENTOCORT EC [Suspect]
     Indication: CROHN^S DISEASE
     Route: 048
     Dates: start: 20140219
  4. PREDNISONE [Suspect]
     Indication: CROHN^S DISEASE
     Dosage: 5 MG MWF
     Route: 048
  5. SYNTHROID [Concomitant]
     Route: 048
  6. FUROSEMIDE [Concomitant]
     Indication: JOINT SWELLING
     Route: 048
  7. POTASSIUM [Concomitant]
     Indication: DIURETIC THERAPY
     Route: 048
  8. EVISTA [Concomitant]
     Indication: OSTEOPOROSIS
     Route: 048
  9. DEXILANT [Concomitant]
     Indication: GASTROOESOPHAGEAL REFLUX DISEASE
     Route: 048
  10. ZANTAC [Concomitant]
     Indication: GASTROOESOPHAGEAL REFLUX DISEASE
     Route: 048
  11. VITAMIN D [Concomitant]
     Indication: OSTEOPOROSIS
     Route: 048
  12. CALCIUM [Concomitant]
     Indication: OSTEOPOROSIS
     Route: 048
  13. FOLIC ACID [Concomitant]
     Indication: SUPPLEMENTATION THERAPY
     Route: 048
  14. XOPENEX [Concomitant]
     Indication: ASTHMA
     Dosage: PRN
     Route: 048
  15. EPIPEN [Concomitant]
     Dosage: PRN
     Route: 048

REACTIONS (7)
  - Osteoporosis [Not Recovered/Not Resolved]
  - Stress fracture [Unknown]
  - Spinal compression fracture [Unknown]
  - Weight increased [Unknown]
  - Body height decreased [Not Recovered/Not Resolved]
  - Mixed connective tissue disease [Unknown]
  - Intentional drug misuse [Unknown]
